FAERS Safety Report 8145330-5 (Version None)
Quarter: 2012Q1

REPORT INFORMATION
  Report Type: 
  Country: None (occurrence: None)
  Receive Date: 20120217
  Receipt Date: 20120213
  Transmission Date: 20120608
  Serious: Yes (Other)
  Sender: FDA-Public Use
  Company Number: US-PFIZER INC-2012039089

PATIENT
  Sex: Male
  Weight: 104 kg

DRUGS (10)
  1. EVEROLIMUS [Suspect]
     Indication: PANCREAS TRANSPLANT
     Dosage: 1 MG, 2X/DAY
     Dates: start: 20111217
  2. METOPROLOL [Concomitant]
     Indication: BLOOD PRESSURE ABNORMAL
     Dosage: 25 MG, DAILY
  3. ACETYLSALICYLIC ACID [Concomitant]
     Dosage: 81 MG, DAILY
  4. VENLAFAXINE [Concomitant]
     Indication: DEPRESSION
     Dosage: 37.5 MG, 2X/DAY
  5. RAPAMUNE [Suspect]
     Indication: PANCREAS TRANSPLANT
     Dosage: UNK
     Dates: end: 20111216
  6. UROXATRAL [Concomitant]
     Indication: BLADDER DISORDER
     Dosage: 10 MG, DAILY
  7. BACTRIM [Concomitant]
     Dosage: DAILY
  8. CEFUROXIME [Concomitant]
     Indication: PANCREAS TRANSPLANT
     Dosage: 75 MG, 2X/DAY
  9. LIPITOR [Concomitant]
     Indication: BLOOD CHOLESTEROL ABNORMAL
     Dosage: 20 MG, DAILY
  10. PARICALCITOL [Concomitant]
     Indication: PARATHYROID DISORDER
     Dosage: 1 MG, 2X/DAY

REACTIONS (1)
  - SKIN CANCER [None]
